FAERS Safety Report 15694701 (Version 1)
Quarter: 2018Q4

REPORT INFORMATION
  Report Type: Spontaneous
  Country: US (occurrence: US)
  Receive Date: 20181206
  Receipt Date: 20181206
  Transmission Date: 20190205
  Serious: No
  Sender: FDA-Public Use
  Company Number: US-ENDO PHARMACEUTICALS INC-2018-012434

PATIENT
  Age: 54 Year
  Sex: Male

DRUGS (2)
  1. XIAFLEX [Suspect]
     Active Substance: COLLAGENASE CLOSTRIDIUM HISTOLYTICUM
     Indication: PEYRONIE^S DISEASE
     Dosage: 0.58 MG, ONCE; SECOND INJECTION OF FIRST CYCLE, INJECTION INTO PENIS
     Route: 026
     Dates: start: 20171201, end: 20171201
  2. XIAFLEX [Suspect]
     Active Substance: COLLAGENASE CLOSTRIDIUM HISTOLYTICUM
     Dosage: 0.58 MG, ONCE; FIRST INJECTION OF FIRST CYCLE, INJECTION INTO PENIS
     Route: 026
     Dates: start: 20171130

REACTIONS (5)
  - Penile swelling [Recovered/Resolved]
  - Penile contusion [Unknown]
  - Wound [Not Recovered/Not Resolved]
  - Blood blister [Not Recovered/Not Resolved]
  - Penile blister [Not Recovered/Not Resolved]

NARRATIVE: CASE EVENT DATE: 201711
